FAERS Safety Report 24113790 (Version 4)
Quarter: 2024Q4

REPORT INFORMATION
  Report Type: Spontaneous
  Country: CA (occurrence: CA)
  Receive Date: 20240720
  Receipt Date: 20241010
  Transmission Date: 20250115
  Serious: Yes (Other)
  Sender: CELLTRION
  Company Number: CA-PFIZER INC-202400180140

PATIENT

DRUGS (7)
  1. INFLECTRA [Suspect]
     Active Substance: INFLIXIMAB-DYYB
     Indication: Colitis ulcerative
     Dosage: 300 MG, 0, 2, 6, THEN EVERY 8 WEEKS
     Route: 042
     Dates: start: 20240221
  2. INFLECTRA [Suspect]
     Active Substance: INFLIXIMAB-DYYB
     Dosage: 300 MG, 0, 2, 6, THEN EVERY 8 WEEKS
     Route: 042
     Dates: start: 2024
  3. INFLECTRA [Suspect]
     Active Substance: INFLIXIMAB-DYYB
     Dosage: 300 MG, 0, 2, 6, THEN EVERY 8 WEEKS
     Route: 042
     Dates: start: 20240403
  4. INFLECTRA [Suspect]
     Active Substance: INFLIXIMAB-DYYB
     Dosage: 300 MG, 9 WEEKS 5 DAYS AFTER LAST TREATMENT (PRESCRIBED TREATMENT IS EVERY 8 WEEKS)
     Route: 042
     Dates: start: 20240610
  5. INFLECTRA [Suspect]
     Active Substance: INFLIXIMAB-DYYB
     Dosage: 600 MG, AFTER 8 WEEKS AND 1 DAY (EVERY 8 WEEK)
     Route: 042
     Dates: start: 20240806
  6. INFLECTRA [Suspect]
     Active Substance: INFLIXIMAB-DYYB
     Dosage: 600 MG, 8 WEEKS(EVERY 8 WEEK)
     Route: 042
     Dates: start: 20241001
  7. CLOBETASOL PROPION [Concomitant]
     Dosage: 1 DF, UNKNOWN
     Route: 061
     Dates: start: 20240131

REACTIONS (15)
  - Neurodermatitis [Not Recovered/Not Resolved]
  - Condition aggravated [Recovering/Resolving]
  - Drug level below therapeutic [Unknown]
  - Rash erythematous [Recovering/Resolving]
  - Scar [Recovering/Resolving]
  - Sensation of foreign body [Not Recovered/Not Resolved]
  - Rash maculo-papular [Recovering/Resolving]
  - Dyspepsia [Recovered/Resolved]
  - Eczema [Recovering/Resolving]
  - Drug eruption [Recovering/Resolving]
  - Dermatitis infected [Recovering/Resolving]
  - Scab [Unknown]
  - Infusion site bruising [Unknown]
  - Pruritus [Not Recovered/Not Resolved]
  - Dermatitis atopic [Not Recovered/Not Resolved]

NARRATIVE: CASE EVENT DATE: 20240101
